FAERS Safety Report 13870346 (Version 1)
Quarter: 2017Q3

REPORT INFORMATION
  Report Type: Spontaneous
  Country: US (occurrence: US)
  Receive Date: 20170815
  Receipt Date: 20170815
  Transmission Date: 20171127
  Serious: Yes (Other)
  Sender: FDA-Public Use
  Company Number: US-GILEAD-2017-0288102

PATIENT
  Age: 70 Year
  Sex: Male

DRUGS (4)
  1. RANEXA [Suspect]
     Active Substance: RANOLAZINE
     Indication: ANGINA PECTORIS
     Dosage: UNK
     Route: 065
     Dates: start: 2008
  2. RANEXA [Suspect]
     Active Substance: RANOLAZINE
     Dosage: 2000 MG, QD
     Route: 065
     Dates: start: 2013
  3. ASPIRIN                            /00002701/ [Suspect]
     Active Substance: ASPIRIN
     Indication: PRODUCT USED FOR UNKNOWN INDICATION
     Route: 065
  4. NEXIUM [Suspect]
     Active Substance: ESOMEPRAZOLE MAGNESIUM
     Indication: ULCER
     Dosage: STARTED WEANING OFF
     Route: 065

REACTIONS (7)
  - Unevaluable event [Not Recovered/Not Resolved]
  - Gastrointestinal ulcer [Recovered/Resolved]
  - Hepatomegaly [Recovered/Resolved]
  - Drug ineffective [Not Recovered/Not Resolved]
  - Chromaturia [Recovered/Resolved]
  - Deafness bilateral [Not Recovered/Not Resolved]
  - Faeces discoloured [Recovered/Resolved]
